FAERS Safety Report 4661976-0 (Version None)
Quarter: 2005Q2

REPORT INFORMATION
  Report Type: 
  Country: None (occurrence: None)
  Receive Date: 20050511
  Receipt Date: 20050511
  Transmission Date: 20051028
  Serious: No
  Sender: FDA-Public Use
  Company Number: None

PATIENT
  Age: 43 Year
  Sex: Male

DRUGS (1)
  1. OXYCODONE HCL [Suspect]
     Indication: CHRONIC TONSILLITIS
     Dosage: 5MG-10MG PO TID
     Route: 048

REACTIONS (1)
  - URTICARIA [None]
